FAERS Safety Report 18711332 (Version 1)
Quarter: 2021Q1

REPORT INFORMATION
  Report Type: Spontaneous
  Country: FR (occurrence: FR)
  Receive Date: 20210107
  Receipt Date: 20210107
  Transmission Date: 20210419
  Serious: Yes (Hospitalization, Other)
  Sender: FDA-Public Use
  Company Number: FR-AMGEN-FRANI2021000346

PATIENT
  Age: 65 Year
  Sex: Male
  Weight: 103 kg

DRUGS (2)
  1. ATEZOLIZUMAB. [Suspect]
     Active Substance: ATEZOLIZUMAB
     Indication: HEPATOCELLULAR CARCINOMA
     Dosage: CYCLE 2 OF ATEZOLIZUMAB ADMINISTERED ON 02/OCT/2020.
     Route: 041
     Dates: start: 20200911
  2. BEVACIZUMAB. [Suspect]
     Active Substance: BEVACIZUMAB
     Indication: HEPATOCELLULAR CARCINOMA
     Dosage: CYCLE 1CYCLE 2 OF BEVACIZUMAB (1545 MG) ADMINISTERED ON 02/OCT/2020.
     Route: 042
     Dates: start: 20200911

REACTIONS (3)
  - Ischaemic stroke [Recovered/Resolved]
  - Mouth haemorrhage [Not Recovered/Not Resolved]
  - Blood thyroid stimulating hormone increased [Not Recovered/Not Resolved]
